FAERS Safety Report 5286123-6 (Version None)
Quarter: 2007Q2

REPORT INFORMATION
  Report Type: 
  Country: None (occurrence: None)
  Receive Date: 20070404
  Receipt Date: 20070326
  Transmission Date: 20071010
  Serious: Yes (Other)
  Sender: FDA-Public Use
  Company Number: US-BRACCO-BDI-009279

PATIENT

DRUGS (1)
  1. CHOLETEC [Suspect]
     Route: 050

REACTIONS (1)
  - HYPERSENSITIVITY [None]
